FAERS Safety Report 12643196 (Version 1)
Quarter: 2016Q3

REPORT INFORMATION
  Report Type: Report from Study
  Country: US (occurrence: US)
  Receive Date: 20160811
  Receipt Date: 20160811
  Transmission Date: 20161109
  Serious: Yes (Life-Threatening, Hospitalization)
  Sender: FDA-Public Use
  Company Number: US-ROCHE-1006942

PATIENT
  Age: 65 Year
  Sex: Female
  Weight: 75.4 kg

DRUGS (4)
  1. VISMODEGIB [Suspect]
     Active Substance: VISMODEGIB
     Indication: SMALL CELL LUNG CANCER
     Route: 048
     Dates: start: 20100907
  2. ETOPOSIDE. [Suspect]
     Active Substance: ETOPOSIDE
     Indication: SMALL CELL LUNG CANCER
     Dosage: DOSE:100 MG/M2/DAY OVER 2 HRS ON DAYS 1-3
     Route: 042
     Dates: start: 20100907, end: 20101018
  3. CISPLATIN. [Suspect]
     Active Substance: CISPLATIN
     Indication: SMALL CELL LUNG CANCER
     Dosage: FREQUENCY:OVER 2 HRS ON DAY1
     Route: 042
     Dates: start: 20100907, end: 20101018
  4. VISMODEGIB [Suspect]
     Active Substance: VISMODEGIB
     Route: 048
     Dates: start: 20100928, end: 20101018

REACTIONS (3)
  - Back pain [Recovered/Resolved]
  - Neutrophil count decreased [Unknown]
  - Fatigue [Recovered/Resolved]

NARRATIVE: CASE EVENT DATE: 20100921
